FAERS Safety Report 6275008-4 (Version None)
Quarter: 2009Q3

REPORT INFORMATION
  Report Type: 
  Country: None (occurrence: None)
  Receive Date: 20090717
  Receipt Date: 20090702
  Transmission Date: 20100115
  Serious: Yes (Other)
  Sender: FDA-Public Use
  Company Number: 001222

PATIENT
  Age: 12 Year
  Sex: Female

DRUGS (2)
  1. LACOSAMIDE [Suspect]
     Indication: GRAND MAL CONVULSION
     Dosage: (150 MG BID, UP TITRATED)
     Dates: start: 20090301, end: 20090301
  2. LACOSAMIDE [Suspect]
     Indication: GRAND MAL CONVULSION
     Dosage: (150 MG BID, UP TITRATED)
     Dates: start: 20090301, end: 20090401

REACTIONS (3)
  - GASTROINTESTINAL INFECTION [None]
  - MYOCLONIC EPILEPSY [None]
  - NAUSEA [None]
